FAERS Safety Report 14531632 (Version 1)
Quarter: 2018Q1

REPORT INFORMATION
  Report Type: Spontaneous
  Country: FR (occurrence: FR)
  Receive Date: 20180214
  Receipt Date: 20180214
  Transmission Date: 20180509
  Serious: Yes (Other)
  Sender: FDA-Public Use
  Company Number: FR-MYLANLABS-2018M1008605

PATIENT
  Age: 35 Year
  Sex: Male

DRUGS (9)
  1. GONADOTROPHINE [Concomitant]
     Indication: PRODUCT USED FOR UNKNOWN INDICATION
     Dosage: UNK
     Route: 030
  2. VENLAFAXINE [Concomitant]
     Active Substance: VENLAFAXINE HYDROCHLORIDE
     Indication: PRODUCT USED FOR UNKNOWN INDICATION
     Dosage: 150 MG, QD
  3. HYDROCORTISONE. [Concomitant]
     Active Substance: HYDROCORTISONE
     Indication: PRODUCT USED FOR UNKNOWN INDICATION
     Dosage: 10 MG, QD
  4. PREGABALIN. [Concomitant]
     Active Substance: PREGABALIN
     Indication: PRODUCT USED FOR UNKNOWN INDICATION
     Dosage: 75 MG, BID
  5. OXYCODONE [Suspect]
     Active Substance: OXYCODONE
     Indication: PRODUCT USED FOR UNKNOWN INDICATION
     Dosage: 80 MG, BID
     Route: 065
  6. FENTANYL. [Suspect]
     Active Substance: FENTANYL
     Indication: PELVIC PAIN
     Dosage: 400 ?G, 6XD
     Route: 065
  7. PENTOSAN [Concomitant]
     Active Substance: PENTOSAN POLYSULFATE SODIUM
     Indication: PRODUCT USED FOR UNKNOWN INDICATION
     Dosage: 100 MG, TID
  8. BUPRENORPHINE HYDROCHLORIDE/NALOXONE HYDROCHLORIDE [Suspect]
     Active Substance: BUPRENORPHINE HYDROCHLORIDE\NALOXONE HYDROCHLORIDE
     Indication: PRODUCT USED FOR UNKNOWN INDICATION
     Dosage: 22 MG, QD
     Route: 065
  9. ZOLPIDEM [Concomitant]
     Active Substance: ZOLPIDEM\ZOLPIDEM TARTRATE
     Indication: PRODUCT USED FOR UNKNOWN INDICATION
     Dosage: 0.5 DF, PM,0.5 DF, PM (IN THE EVENING)

REACTIONS (12)
  - Thermophobia [Unknown]
  - Fatigue [Unknown]
  - Disturbance in attention [Unknown]
  - Libido decreased [Unknown]
  - Asthenia [Unknown]
  - Memory impairment [Unknown]
  - Hyperhidrosis [Unknown]
  - Hypopituitarism [Unknown]
  - Headache [Unknown]
  - Adrenocorticotropic hormone deficiency [Unknown]
  - Drug dependence [Unknown]
  - Feeling cold [Unknown]
